FAERS Safety Report 18425359 (Version 1)
Quarter: 2020Q4

REPORT INFORMATION
  Report Type: Spontaneous
  Country: US (occurrence: US)
  Receive Date: 20201026
  Receipt Date: 20201026
  Transmission Date: 20210114
  Serious: Yes (Hospitalization, Other)
  Sender: FDA-Public Use
  Company Number: US-HIKMA PHARMACEUTICALS USA INC.-US-H14001-20-04820

PATIENT
  Age: 72 Year
  Sex: Female

DRUGS (12)
  1. IRINOTECAN [Suspect]
     Active Substance: IRINOTECAN
     Indication: PANCREATIC CARCINOMA METASTATIC
     Route: 042
     Dates: start: 20200807, end: 20200807
  2. FLUOROURACIL. [Suspect]
     Active Substance: FLUOROURACIL
     Indication: PANCREATIC CARCINOMA METASTATIC
     Route: 065
     Dates: start: 20200807, end: 20200809
  3. PARICALCITOL. [Suspect]
     Active Substance: PARICALCITOL
     Indication: PANCREATIC CARCINOMA METASTATIC
     Route: 042
     Dates: start: 20200807, end: 20200807
  4. CIPROFLOXACIN. [Concomitant]
     Active Substance: CIPROFLOXACIN
     Indication: PRODUCT USED FOR UNKNOWN INDICATION
     Dosage: UNKNOWN
     Route: 048
  5. LEUCOVORIN. [Suspect]
     Active Substance: LEUCOVORIN
     Indication: PANCREATIC CARCINOMA METASTATIC
     Route: 042
     Dates: start: 20200807, end: 20200807
  6. UNASYN [Concomitant]
     Active Substance: AMPICILLIN SODIUM\SULBACTAM SODIUM
     Indication: PRODUCT USED FOR UNKNOWN INDICATION
     Dosage: UNKNOWN
     Route: 065
  7. APAP [Concomitant]
     Active Substance: ACETAMINOPHEN
     Indication: PRODUCT USED FOR UNKNOWN INDICATION
     Route: 065
  8. CEFEPIME [Concomitant]
     Active Substance: CEFEPIME HYDROCHLORIDE
     Indication: PRODUCT USED FOR UNKNOWN INDICATION
     Route: 065
  9. MORPHINE [Concomitant]
     Active Substance: MORPHINE
     Indication: PRODUCT USED FOR UNKNOWN INDICATION
     Route: 065
  10. VANCOMYCIN [Concomitant]
     Active Substance: VANCOMYCIN
     Indication: PRODUCT USED FOR UNKNOWN INDICATION
     Route: 065
  11. ZOFRAN [Concomitant]
     Active Substance: ONDANSETRON HYDROCHLORIDE
     Indication: PRODUCT USED FOR UNKNOWN INDICATION
     Route: 065
  12. FLAGYL [Concomitant]
     Active Substance: METRONIDAZOLE\METRONIDAZOLE HYDROCHLORIDE
     Indication: PRODUCT USED FOR UNKNOWN INDICATION
     Dosage: UNKNOWN
     Route: 065

REACTIONS (23)
  - Fatigue [Unknown]
  - Leukocytosis [Unknown]
  - Anaemia macrocytic [Unknown]
  - Diverticulum [Unknown]
  - Sinus tachycardia [Unknown]
  - Hypomagnesaemia [Unknown]
  - Vomiting [Unknown]
  - Febrile neutropenia [Unknown]
  - Hypokalaemia [Unknown]
  - Hypercalcaemia [Unknown]
  - Duodenal stenosis [Unknown]
  - Pancytopenia [Unknown]
  - COVID-19 pneumonia [Unknown]
  - Respiratory failure [Unknown]
  - Biliary obstruction [Recovered/Resolved]
  - Decreased appetite [Unknown]
  - Abdominal pain [Unknown]
  - Constipation [Unknown]
  - Hyponatraemia [Unknown]
  - Cholecystitis [Recovered/Resolved]
  - Nausea [Unknown]
  - Obstruction gastric [Recovered/Resolved]
  - Sepsis [Recovered/Resolved]
